FAERS Safety Report 4375085-1 (Version None)
Quarter: 2004Q2

REPORT INFORMATION
  Report Type: 
  Country: None (occurrence: None)
  Receive Date: 20040603
  Receipt Date: 20040521
  Transmission Date: 20050107
  Serious: Yes (Death)
  Sender: FDA-Public Use
  Company Number: BE-JNJFOC-20040505081

PATIENT
  Age: 90 Year
  Sex: Male

DRUGS (1)
  1. PREPULSID (CISAPRIDE) TABLETS [Suspect]
     Indication: IMPAIRED GASTRIC EMPTYING
     Dosage: 10 MG, 3 IN 1 DAY
     Dates: start: 20031120

REACTIONS (1)
  - DEATH [None]
